FAERS Safety Report 21088780 (Version 2)
Quarter: 2022Q3

REPORT INFORMATION
  Report Type: Report from Study
  Country: AT (occurrence: AT)
  Receive Date: 20220715
  Receipt Date: 20220823
  Transmission Date: 20221027
  Serious: Yes (Other)
  Sender: FDA-Public Use
  Company Number: AT-PFM-2022-05675

PATIENT
  Sex: Male
  Weight: 68 kg

DRUGS (23)
  1. ENCORAFENIB [Suspect]
     Active Substance: ENCORAFENIB
     Indication: Colorectal cancer
     Dosage: 300 MG/DAY
     Route: 048
     Dates: start: 20220415
  2. CETUXIMAB [Suspect]
     Active Substance: CETUXIMAB
     Indication: Colorectal cancer
     Dosage: 250 MG/M2, WEEK
     Route: 042
     Dates: start: 20220415
  3. BISOPROLOL [Concomitant]
     Active Substance: BISOPROLOL
     Indication: Cardiomyopathy
     Dosage: 10 MG DAILY
     Route: 048
     Dates: start: 2017
  4. DIGITOXIN [Concomitant]
     Active Substance: DIGITOXIN
     Indication: Cardiomyopathy
     Dosage: 0.07 MG, 5 TIMES A WEEK
     Route: 048
     Dates: start: 2017
  5. PRADAXA [Concomitant]
     Active Substance: DABIGATRAN ETEXILATE MESYLATE
     Indication: Atrial fibrillation
     Dosage: 150 MG, BID (2/DAY)
     Route: 048
     Dates: start: 2017
  6. METOCLOPRAMIDE HYDROCHLORIDE [Concomitant]
     Active Substance: METOCLOPRAMIDE HYDROCHLORIDE
     Dosage: 1 DF PRN (AS NEEDED)
     Route: 048
     Dates: start: 2021, end: 202205
  7. ATORVASTATIN [Concomitant]
     Active Substance: ATORVASTATIN
     Indication: Cardiomyopathy
     Dosage: 20 MG DAILY
     Route: 048
     Dates: start: 202105
  8. MAGNESIUM [Concomitant]
     Active Substance: MAGNESIUM
     Indication: Prophylaxis
     Dosage: 60 MG DAILY
     Route: 048
     Dates: start: 20220325
  9. IMODIUM [Concomitant]
     Active Substance: LOPERAMIDE HYDROCHLORIDE
     Indication: Prophylaxis
     Dosage: 2 MG PRN (AS NEEDED)
     Route: 048
     Dates: start: 20220415
  10. PANTOPRAZOLE SODIUM [Concomitant]
     Active Substance: PANTOPRAZOLE SODIUM
     Indication: Prophylaxis
     Dosage: 40 MG DAILY
     Route: 048
     Dates: start: 20220415
  11. VIBRAMYCIN [DOXYCYCLINE HYCLATE] [Concomitant]
     Indication: Prophylaxis
     Dosage: 100 MG, BID (2/DAY) DAILY
     Route: 048
     Dates: start: 20220415, end: 202205
  12. DIPHENHYDRAMINE HYDROCHLORIDE [Concomitant]
     Active Substance: DIPHENHYDRAMINE HYDROCHLORIDE
     Indication: Prophylaxis
     Dosage: 50 MG BEFORE CETUXIMAB
     Route: 048
     Dates: start: 20220415, end: 20220630
  13. DEXAMETHASONE SODIUM PHOSPHATE [Concomitant]
     Active Substance: DEXAMETHASONE SODIUM PHOSPHATE
     Indication: Prophylaxis
     Dosage: 20 MG BEFORE CETUXIMAB
     Route: 048
     Dates: start: 20220415, end: 20220630
  14. DRONABINOL [Concomitant]
     Active Substance: DRONABINOL
     Indication: Prophylaxis
     Dosage: 10 G, PRN (AS NEEDED)
     Route: 048
     Dates: start: 20220501, end: 202205
  15. HALCION [Concomitant]
     Active Substance: TRIAZOLAM
     Indication: Prophylaxis
     Dosage: 0.25 MG, PRN (AS NEEDED)
     Route: 048
     Dates: start: 20220501
  16. ACETAMINOPHEN [Concomitant]
     Active Substance: ACETAMINOPHEN
     Indication: Prophylaxis
     Dosage: 500 MG, PRN (AS NEEDED)
     Route: 048
     Dates: start: 20220501, end: 202205
  17. METAMIZOL [Concomitant]
     Active Substance: METAMIZOLE SODIUM
     Indication: Prophylaxis
     Dosage: 1 G, PRN (AS NEEDED)
     Route: 042
     Dates: start: 20220501, end: 20220502
  18. RINGER LACTATE [CALCIUM CHLORIDE DIHYDRATE;POTASSIUM CHLORIDE;SODIUM C [Concomitant]
     Indication: Abdominal pain
     Dosage: 1 L DAILY
     Route: 042
     Dates: start: 20220501, end: 20220503
  19. HYDROMORPHONE HYDROCHLORIDE [Concomitant]
     Active Substance: HYDROMORPHONE HYDROCHLORIDE
     Indication: Prophylaxis
     Dosage: 1.3 MG, PRN (AS NEEDED)
     Route: 048
     Dates: start: 20220502
  20. MOVICOL [Concomitant]
     Active Substance: POLYETHYLENE GLYCOL 3350\POTASSIUM CHLORIDE\SODIUM BICARBONATE\SODIUM CHLORIDE
     Indication: Prophylaxis
     Dosage: 6.9 G, PRN (AS NEEDED)
     Route: 048
     Dates: start: 20220502, end: 202205
  21. ACETAMINOPHEN\CAFFEINE\PROPYPHENAZONE [Concomitant]
     Active Substance: ACETAMINOPHEN\CAFFEINE\PROPYPHENAZONE
     Indication: Prophylaxis
     Dosage: 30 DROPS, PRN (AS NEEDED)
     Route: 048
     Dates: start: 20220503, end: 202205
  22. AMLODIPIN/VALSARTAN SANDOZ [Concomitant]
     Indication: Hypertension
     Dosage: UNK MG DAILY
     Route: 048
     Dates: start: 20220503
  23. BISOPROLOL FUMARATE [Concomitant]
     Active Substance: BISOPROLOL FUMARATE
     Indication: Hypertension
     Dosage: 5 MG, BID (2/DAY) DAILY
     Route: 048
     Dates: start: 20220523

REACTIONS (6)
  - General physical health deterioration [Recovered/Resolved]
  - Weight decreased [Recovered/Resolved]
  - Nausea [Recovered/Resolved]
  - Vomiting [Recovered/Resolved]
  - Vertigo [Recovered/Resolved]
  - Rash [Not Recovered/Not Resolved]

NARRATIVE: CASE EVENT DATE: 20220401
